FAERS Safety Report 24025284 (Version 1)
Quarter: 2024Q2

REPORT INFORMATION
  Report Type: Spontaneous
  Country: US (occurrence: US)
  Receive Date: 20240628
  Receipt Date: 20240628
  Transmission Date: 20240716
  Serious: No
  Sender: FDA-Public Use
  Company Number: US-AUROBINDO-AUR-APL-2023-064290

PATIENT
  Age: 7 Year
  Sex: Female
  Weight: 27.2 kg

DRUGS (1)
  1. AZELASTINE HYDROCHLORIDE [Suspect]
     Active Substance: AZELASTINE HYDROCHLORIDE
     Indication: Product used for unknown indication
     Dosage: UNK, TWO TIMES A DAY (ONE IN THE MORNING AND ONE IN THE EVENING)
     Route: 065
     Dates: start: 20231005, end: 20231008

REACTIONS (4)
  - Product dose omission issue [Unknown]
  - Product leakage [Unknown]
  - Product closure issue [Unknown]
  - Device defective [Unknown]
